FAERS Safety Report 7770070-1 (Version None)
Quarter: 2011Q3

REPORT INFORMATION
  Report Type: 
  Country: None (occurrence: None)
  Receive Date: 20110920
  Receipt Date: 20110909
  Transmission Date: 20111222
  Serious: Yes (Hospitalization)
  Sender: FDA-Public Use
  Company Number: VISP-NO-1109S-0370

PATIENT
  Age: 29 Year
  Sex: Female

DRUGS (1)
  1. VISIPAQUE [Suspect]
     Indication: PRODUCT USED FOR UNKNOWN INDICATION
     Dosage: 120 ML, SINGLE DOSE, INTRAVENOUS
     Route: 042
     Dates: start: 20110816, end: 20110816

REACTIONS (8)
  - CHILLS [None]
  - RASH GENERALISED [None]
  - NEUTROPHIL PERCENTAGE INCREASED [None]
  - FATIGUE [None]
  - RASH ERYTHEMATOUS [None]
  - PRURITUS [None]
  - PAIN [None]
  - RASH PUSTULAR [None]
